FAERS Safety Report 15236821 (Version 1)
Quarter: 2018Q3

REPORT INFORMATION
  Report Type: Spontaneous
  Country: US (occurrence: US)
  Receive Date: 20180803
  Receipt Date: 20180803
  Transmission Date: 20181010
  Serious: No
  Sender: FDA-Public Use
  Company Number: US-SCIEGEN PHARMACEUTICALS INC-2018SCISPO00496

PATIENT

DRUGS (7)
  1. CLONAZEPAM. [Interacting]
     Active Substance: CLONAZEPAM
     Indication: ANXIETY
     Dosage: 1 MG, TWICE A DAY
     Route: 065
  2. CLONAZEPAM. [Interacting]
     Active Substance: CLONAZEPAM
     Dosage: 3 MG A DAY
     Route: 065
  3. BUPROPION HYDROCHLORIDE. [Suspect]
     Active Substance: BUPROPION HYDROCHLORIDE
     Indication: DEPRESSION
     Dosage: UNK
     Route: 065
     Dates: start: 201801
  4. CLONAZEPAM. [Interacting]
     Active Substance: CLONAZEPAM
     Dosage: 2 MG, TWICE A DAY
     Route: 065
  5. CLONAZEPAM. [Interacting]
     Active Substance: CLONAZEPAM
     Dosage: 4 MG A DAY
     Route: 065
  6. CLONAZEPAM. [Interacting]
     Active Substance: CLONAZEPAM
     Dosage: 2 MG, TWICE A DAY
     Route: 065
  7. SEROQUEL [Concomitant]
     Active Substance: QUETIAPINE FUMARATE
     Indication: PRODUCT USED FOR UNKNOWN INDICATION
     Dosage: 50 MG, AT NIGHT
     Route: 065

REACTIONS (2)
  - Panic attack [Unknown]
  - Drug interaction [Unknown]
